FAERS Safety Report 20982477 (Version 1)
Quarter: 2022Q2

REPORT INFORMATION
  Report Type: Report from Study
  Country: CN (occurrence: CN)
  Receive Date: 20220620
  Receipt Date: 20220620
  Transmission Date: 20220721
  Serious: Yes (Other)
  Sender: FDA-Public Use
  Company Number: CN-BAYER-2022A084801

PATIENT
  Age: 65 Year
  Sex: Female

DRUGS (2)
  1. REGORAFENIB [Suspect]
     Active Substance: REGORAFENIB
     Indication: Colorectal cancer
  2. CAMRELIZUMAB [Suspect]
     Active Substance: CAMRELIZUMAB
     Indication: Colorectal cancer
     Dosage: 2 DF

REACTIONS (2)
  - Myocarditis [Recovered/Resolved]
  - Thyroiditis [None]

NARRATIVE: CASE EVENT DATE: 20191001
